FAERS Safety Report 17052331 (Version 5)
Quarter: 2023Q1

REPORT INFORMATION
  Report Type: Spontaneous
  Country: US (occurrence: US)
  Receive Date: 20191120
  Receipt Date: 20230103
  Transmission Date: 20230418
  Serious: Yes (Other)
  Sender: FDA-Public Use
  Company Number: US-PFIZER INC-2018446071

PATIENT
  Age: 12 Year
  Sex: Male
  Weight: 41.723 kg

DRUGS (13)
  1. GENOTROPIN [Suspect]
     Active Substance: SOMATROPIN
     Indication: Growth failure
     Dosage: 1.6 MG, DAILY
     Route: 058
  2. GENOTROPIN [Suspect]
     Active Substance: SOMATROPIN
     Indication: Endocrine disorder
     Dosage: 2.2 MG, DAILY
     Route: 058
     Dates: start: 20181019
  3. GENOTROPIN [Suspect]
     Active Substance: SOMATROPIN
     Dosage: 2.2 MG, 1X/DAY
     Route: 058
     Dates: start: 20181031
  4. GENOTROPIN [Suspect]
     Active Substance: SOMATROPIN
     Dosage: 2.4 MG, DAILY
     Dates: start: 2018
  5. GENOTROPIN [Suspect]
     Active Substance: SOMATROPIN
     Dosage: 3.2 MG, DAILY
  6. EPIPEN [Concomitant]
     Active Substance: EPINEPHRINE
     Dosage: UNK (2-PAK 0.3 MG/0.3 ML INJECTION SOLUTION AUTO-INJECTOR )
     Dates: start: 20150505
  7. FLUDROCORTISONE ACETATE [Concomitant]
     Active Substance: FLUDROCORTISONE ACETATE
     Dosage: 0.1 MG, DAILY
     Route: 048
     Dates: start: 20130530
  8. HYDROCORTISONE [Concomitant]
     Active Substance: HYDROCORTISONE
     Dosage: UNK, 3X/DAY (TAKEN 1TABLET IN THE MORNING, ONE-HALF TABLET IN THE AFTERNOON, AND 1 TABLET AT NIGHT)
     Route: 048
     Dates: start: 20120626
  9. IBUPROFEN [Concomitant]
     Active Substance: IBUPROFEN
     Dosage: UNK (100MG/5ML ORAL SUSPENSION)
     Dates: start: 20180930
  10. LETROZOLE [Concomitant]
     Active Substance: LETROZOLE
     Dosage: 2.5 MG, DAILY
     Route: 048
     Dates: start: 20181014
  11. LEVOTHYROXINE SODIUM [Concomitant]
     Active Substance: LEVOTHYROXINE SODIUM
     Dosage: 25 UG, DAILY
     Route: 048
     Dates: start: 20180501
  12. ACETAMINOPHEN [Concomitant]
     Active Substance: ACETAMINOPHEN
     Dosage: UNK (160MG/5ML ORAL LIQUID)
     Route: 048
     Dates: start: 20180930
  13. SOLU-CORTEF [Concomitant]
     Active Substance: HYDROCORTISONE SODIUM SUCCINATE
     Indication: Adrenocortical insufficiency acute
     Dosage: 100 MG, AS NEEDED
     Route: 030
     Dates: start: 20191014

REACTIONS (3)
  - Autoimmune thyroiditis [Unknown]
  - Off label use [Unknown]
  - Device use issue [Unknown]
